FAERS Safety Report 8726310 (Version 2)
Quarter: 2013Q1

REPORT INFORMATION
  Report Type: Spontaneous
  Country: BR (occurrence: BR)
  Receive Date: 20120816
  Receipt Date: 20130311
  Transmission Date: 20140127
  Serious: Yes (Life-Threatening, Hospitalization, Other)
  Sender: FDA-Public Use
  Company Number: PHHY2012BR070285

PATIENT
  Sex: Female

DRUGS (4)
  1. FORASEQ [Suspect]
     Indication: ASTHMA
     Dosage: 1 DF, Q12H
  2. FORASEQ [Suspect]
     Dosage: 1 DF, QD
  3. FORASEQ [Suspect]
     Dosage: 1 DF, QW2
  4. FORASEQ [Suspect]
     Dosage: 2 DF, A DAY

REACTIONS (5)
  - Apparent death [Recovered/Resolved]
  - Bronchitis [Recovered/Resolved]
  - Pneumonia [Recovered/Resolved]
  - Asthma [Unknown]
  - Incorrect dose administered [Unknown]
